FAERS Safety Report 22337337 (Version 1)
Quarter: 2023Q2

REPORT INFORMATION
  Report Type: Spontaneous
  Country: US (occurrence: US)
  Receive Date: 20230518
  Receipt Date: 20230518
  Transmission Date: 20230721
  Serious: No
  Sender: FDA-Public Use
  Company Number: US-MYLANLABS-2023M1049018

PATIENT
  Sex: Female
  Weight: 56.7 kg

DRUGS (1)
  1. ESTRADIOL TRANSDERMAL SYSTEM [Suspect]
     Active Substance: ESTRADIOL
     Indication: Hormone therapy
     Dosage: 0.025 MILLIGRAM, QD (ONCE-WEEKLY)
     Route: 062

REACTIONS (3)
  - Application site discolouration [Unknown]
  - Wrong technique in product usage process [Unknown]
  - Product adhesion issue [Unknown]
